FAERS Safety Report 10425699 (Version 2)
Quarter: 2018Q1

REPORT INFORMATION
  Report Type: Report from Study
  Country: BR (occurrence: BR)
  Receive Date: 20140903
  Receipt Date: 20180314
  Transmission Date: 20180508
  Serious: Yes (Hospitalization)
  Sender: FDA-Public Use
  Company Number: BR-ROCHE-1457277

PATIENT
  Sex: Female

DRUGS (1)
  1. ACTEMRA [Suspect]
     Active Substance: TOCILIZUMAB
     Indication: RHEUMATOID ARTHRITIS
     Dosage: LAST INFUSION ON: 01/JUL/2014. TOTAL 5 INFUSIONS.?LAST INFUSION ON: 27/FEB/2017
     Route: 042
     Dates: start: 20140328

REACTIONS (2)
  - Arthropathy [Unknown]
  - Arthropathy [Not Recovered/Not Resolved]
